FAERS Safety Report 11500410 (Version 1)
Quarter: 2015Q3

REPORT INFORMATION
  Report Type: Spontaneous
  Country: US (occurrence: US)
  Receive Date: 20150914
  Receipt Date: 20150914
  Transmission Date: 20151125
  Serious: No
  Sender: FDA-Public Use
  Company Number: US-PFIZER INC-2015294344

PATIENT
  Age: 57 Year
  Sex: Male
  Weight: 91 kg

DRUGS (9)
  1. NAPROXEN. [Concomitant]
     Active Substance: NAPROXEN
     Dosage: 100 MG, 2X/DAY
  2. CHLORTHALIDONE. [Concomitant]
     Active Substance: CHLORTHALIDONE
     Dosage: 45 MG, 1X/DAY
  3. VALSARTAN. [Concomitant]
     Active Substance: VALSARTAN
     Indication: BLOOD PRESSURE ABNORMAL
     Dosage: 160 MG, 1X/DAY
  4. FLEXERIL [Concomitant]
     Active Substance: CYCLOBENZAPRINE HYDROCHLORIDE
     Dosage: 10 MG, UNK (OCCASIONALLY)
  5. PRILOSEC [Concomitant]
     Active Substance: OMEPRAZOLE MAGNESIUM
     Dosage: 20 MG, DAILY
  6. WELLBUTRIN [Concomitant]
     Active Substance: BUPROPION HYDROCHLORIDE
     Indication: PANIC DISORDER
     Dosage: 100 MG, 1X/DAY
  7. LEXAPRO [Concomitant]
     Active Substance: ESCITALOPRAM OXALATE
     Indication: PANIC DISORDER
     Dosage: 20 MG, DAILY
  8. KLOR-CON M20 [Concomitant]
     Active Substance: POTASSIUM CHLORIDE
     Dosage: UNK
  9. LYRICA [Suspect]
     Active Substance: PREGABALIN
     Indication: SCIATICA
     Dosage: THREE 150 MG A DAY
     Route: 048
     Dates: start: 2015

REACTIONS (4)
  - Vomiting [Unknown]
  - Cough [Unknown]
  - Drug ineffective [Not Recovered/Not Resolved]
  - Joint swelling [Not Recovered/Not Resolved]
